FAERS Safety Report 20582980 (Version 1)
Quarter: 2022Q1

REPORT INFORMATION
  Report Type: Spontaneous
  Country: CN (occurrence: CN)
  Receive Date: 20220311
  Receipt Date: 20220311
  Transmission Date: 20220423
  Serious: Yes (Other)
  Sender: FDA-Public Use
  Company Number: CN-SUN PHARMACEUTICAL INDUSTRIES LTD-2022R1-329583

PATIENT
  Age: 14 Year
  Sex: Male

DRUGS (6)
  1. DEXAMETHASONE [Suspect]
     Active Substance: DEXAMETHASONE
     Indication: Cutaneous lymphoma
     Dosage: 20 MILLIGRAM DAY 1-5, 21 D CYCLE(6 CYCLES)
     Route: 065
  2. DOXORUBICIN [Suspect]
     Active Substance: DOXORUBICIN
     Indication: Cutaneous lymphoma
     Dosage: 70 MILLIGRAM DAY1, 21 D CYCLE(6 CYCLES)
     Route: 065
  3. VINCRISTINE [Suspect]
     Active Substance: VINCRISTINE
     Indication: Cutaneous lymphoma
     Dosage: 2 MILLIGRAM DAY1, 21 D CYCLE(6 CYCLES)
     Route: 065
  4. CYCLOPHOSPHAMIDE [Suspect]
     Active Substance: CYCLOPHOSPHAMIDE
     Indication: Cutaneous lymphoma
     Dosage: 1100 MILLIGRAM, DAY 1, 21 D CYCLE(6 CYCLES)
     Route: 065
  5. ETOPOSIDE [Suspect]
     Active Substance: ETOPOSIDE
     Indication: Cutaneous lymphoma
     Dosage: 100 MILLIGRAM,DAY 1-5, 21 D CYCLE(6 CYCLES)
     Route: 065
  6. TUCIDINOSTAT [Suspect]
     Active Substance: TUCIDINOSTAT
     Indication: Cutaneous lymphoma
     Dosage: 30 MILLIGRAM, BIW, 21 D CYCLE(6 CYCLES)
     Route: 065

REACTIONS (1)
  - Myelosuppression [Unknown]
